FAERS Safety Report 6876677-8 (Version None)
Quarter: 2010Q3

REPORT INFORMATION
  Report Type: 
  Country: None (occurrence: None)
  Receive Date: 20100727
  Receipt Date: 20100713
  Transmission Date: 20110219
  Serious: Yes (Hospitalization)
  Sender: FDA-Public Use
  Company Number: NL-MYLANLABS-2010S1012394

PATIENT
  Age: 75 Year
  Sex: Male

DRUGS (9)
  1. DIGOXIN [Interacting]
     Indication: OVERDOSE
     Route: 048
  2. SOTALOL HCL [Suspect]
     Indication: OVERDOSE
     Route: 048
  3. ISOSORBIDE MONONITRATE [Interacting]
     Indication: OVERDOSE
     Route: 048
  4. ACENOCOUMAROL [Suspect]
     Indication: OVERDOSE
     Route: 048
  5. ATORVASTATIN [Suspect]
     Indication: OVERDOSE
     Route: 048
  6. PERINDOPRIL [Suspect]
     Indication: OVERDOSE
     Route: 048
  7. FUROSEMIDE [Suspect]
     Indication: OVERDOSE
     Route: 048
  8. AMLODIPINE [Suspect]
     Indication: OVERDOSE
     Route: 048
  9. AMIODARONE HCL [Interacting]
     Indication: VENTRICULAR ARRHYTHMIA
     Route: 065

REACTIONS (4)
  - CARDIOGENIC SHOCK [None]
  - DRUG INTERACTION [None]
  - OVERDOSE [None]
  - RENAL FAILURE [None]
